FAERS Safety Report 21172557 (Version 1)
Quarter: 2022Q3

REPORT INFORMATION
  Report Type: Spontaneous
  Country: GB (occurrence: GB)
  Receive Date: 20220804
  Receipt Date: 20220804
  Transmission Date: 20221027
  Serious: Yes (Hospitalization)
  Sender: FDA-Public Use
  Company Number: GB-MYLANLABS-2022M1083404

PATIENT
  Age: 35 Year
  Sex: Female

DRUGS (5)
  1. TRANEXAMIC ACID [Suspect]
     Active Substance: TRANEXAMIC ACID
     Indication: Postpartum haemorrhage
     Dosage: 1 GRAM
     Route: 065
  2. CARBOPROST [Suspect]
     Active Substance: CARBOPROST
     Indication: Postpartum haemorrhage
     Dosage: 250 MICRO
     Route: 065
  3. CARBOPROST [Suspect]
     Active Substance: CARBOPROST
     Dosage: THREE ADDITIONAL DOSES WERE ADMINISTERED
     Route: 065
  4. MISOPROSTOL [Suspect]
     Active Substance: MISOPROSTOL
     Indication: Uterine atony
     Dosage: 1000 MICRO
     Route: 065
  5. ERGONOVINE\OXYTOCIN [Suspect]
     Active Substance: ERGONOVINE\OXYTOCIN
     Indication: Uterine atony
     Dosage: 500MICRO/5IU
     Route: 065

REACTIONS (2)
  - Drug ineffective [Unknown]
  - Maternal exposure during delivery [Unknown]
